FAERS Safety Report 21355377 (Version 1)
Quarter: 2022Q3

REPORT INFORMATION
  Report Type: Spontaneous
  Country: US (occurrence: None)
  Receive Date: 20220920
  Receipt Date: 20220920
  Transmission Date: 20221026
  Serious: Yes (Hospitalization)
  Sender: FDA-Public Use
  Company Number: None

PATIENT
  Age: 68 Year
  Sex: Female

DRUGS (22)
  1. COPAXONE [Suspect]
     Active Substance: GLATIRAMER ACETATE
     Indication: Multiple sclerosis
     Dosage: OTHER FREQUENCY : 40MG 3 DAYS/WEEK;?
     Route: 058
     Dates: start: 20210113
  2. BACLOFEN [Concomitant]
     Active Substance: BACLOFEN
  3. DILANTIN [Concomitant]
     Active Substance: PHENYTOIN
  4. ZANAFLEX [Concomitant]
     Active Substance: TIZANIDINE HYDROCHLORIDE
  5. AMLODIPINE [Concomitant]
     Active Substance: AMLODIPINE BESYLATE
  6. DIAZEPAM [Concomitant]
     Active Substance: DIAZEPAM
  7. Estradiol 0.01% Vaginal Cream [Concomitant]
  8. FLUTICASONE [Concomitant]
     Active Substance: FLUTICASONE
  9. LEVOTHYROXINE [Concomitant]
     Active Substance: LEVOTHYROXINE
  10. MIRALAX [Concomitant]
     Active Substance: POLYETHYLENE GLYCOL 3350
  11. RESTORIL [Concomitant]
     Active Substance: TEMAZEPAM
  12. VENTOLIN [Concomitant]
     Active Substance: ALBUTEROL SULFATE
  13. VITAMIN C [Concomitant]
     Active Substance: ASCORBIC ACID
  14. VITAMIN D [Concomitant]
     Active Substance: VITAMIN D NOS
  15. BACTRIM [Concomitant]
     Active Substance: SULFAMETHOXAZOLE\TRIMETHOPRIM
  16. ACETAMINOPHEN [Concomitant]
     Active Substance: ACETAMINOPHEN
  17. NITROFURANTOIN [Concomitant]
     Active Substance: NITROFURANTOIN
  18. SENNA PLUS [Concomitant]
     Active Substance: DOCUSATE SODIUM\SENNOSIDES\SENNOSIDES A AND B
  19. ARGININE [Concomitant]
     Active Substance: ARGININE
  20. LOSARTAN [Concomitant]
     Active Substance: LOSARTAN
  21. Multivitamin with Lutein + Lycopene [Concomitant]
  22. Co Q 10 + Aspirin [Concomitant]

REACTIONS (1)
  - Coronary artery occlusion [None]

NARRATIVE: CASE EVENT DATE: 20220816
